FAERS Safety Report 20990159 (Version 3)
Quarter: 2022Q3

REPORT INFORMATION
  Report Type: Spontaneous
  Country: CO (occurrence: CO)
  Receive Date: 20220621
  Receipt Date: 20220719
  Transmission Date: 20221027
  Serious: Yes (Other)
  Sender: FDA-Public Use
  Company Number: CO-SUN PHARMACEUTICAL INDUSTRIES LTD-2022R1-341429

PATIENT
  Age: 19 Year
  Sex: Female

DRUGS (3)
  1. METHYLPREDNISOLONE [Suspect]
     Active Substance: METHYLPREDNISOLONE
     Indication: Haemodynamic instability
     Dosage: 1 GRAM, DAILY
     Route: 042
  2. METHYLPREDNISOLONE [Suspect]
     Active Substance: METHYLPREDNISOLONE
     Dosage: 0.5 MILLIGRAM/KILOGRAM, DAILY
     Route: 042
  3. PREDNISONE [Suspect]
     Active Substance: PREDNISONE
     Indication: Haemodynamic instability
     Dosage: .5 MILLIGRAM/KILOGRAM, DAILY
     Route: 048

REACTIONS (2)
  - Exposure during pregnancy [Unknown]
  - Premature delivery [Unknown]
